FAERS Safety Report 10904682 (Version 1)
Quarter: 2015Q1

REPORT INFORMATION
  Report Type: Spontaneous
  Country: US (occurrence: None)
  Receive Date: 20150309
  Receipt Date: 20150309
  Transmission Date: 20150721
  Serious: Yes (Death)
  Sender: FDA-Public Use
  Company Number: None

PATIENT
  Sex: Female

DRUGS (1)
  1. CEPHALEXIN. [Suspect]
     Active Substance: CEPHALEXIN
     Dates: start: 20150118, end: 20150118

REACTIONS (6)
  - No therapeutic response [None]
  - Renal failure [None]
  - Hepatic failure [None]
  - Cardiac disorder [None]
  - Diarrhoea [None]
  - Sepsis [None]

NARRATIVE: CASE EVENT DATE: 20150130
